FAERS Safety Report 8447562-5 (Version None)
Quarter: 2012Q2

REPORT INFORMATION
  Report Type: 
  Country: None (occurrence: None)
  Receive Date: 20120619
  Receipt Date: 20120611
  Transmission Date: 20120825
  Serious: Yes (Other)
  Sender: FDA-Public Use
  Company Number: US-US-EMD SERONO, INC.-7025569

PATIENT
  Sex: Female
  Weight: 50 kg

DRUGS (1)
  1. REBIF [Suspect]
     Indication: MULTIPLE SCLEROSIS
     Route: 058
     Dates: start: 20100302

REACTIONS (4)
  - THROMBOCYTOPENIA [None]
  - SYSTEMIC LUPUS ERYTHEMATOSUS [None]
  - FIBROMYALGIA [None]
  - ARTHRALGIA [None]
